FAERS Safety Report 13284952 (Version 1)
Quarter: 2017Q1

REPORT INFORMATION
  Report Type: Spontaneous
  Country: US (occurrence: US)
  Receive Date: 20170301
  Receipt Date: 20170301
  Transmission Date: 20170428
  Serious: No
  Sender: FDA-Public Use
  Company Number: US-009507513-1702USA008505

PATIENT
  Age: 17 Year
  Sex: Female
  Weight: 72.56 kg

DRUGS (2)
  1. CELEXA [Concomitant]
     Active Substance: CITALOPRAM HYDROBROMIDE
  2. NEXPLANON [Suspect]
     Active Substance: ETONOGESTREL
     Indication: CONTRACEPTION
     Dosage: 1 DF, UNK, EVERY 3 YEARS
     Route: 059
     Dates: start: 20160330

REACTIONS (3)
  - Implant site pain [Unknown]
  - Complication associated with device [Unknown]
  - Migration of implanted drug [Unknown]
